FAERS Safety Report 18954272 (Version 2)
Quarter: 2022Q2

REPORT INFORMATION
  Report Type: Spontaneous
  Country: CH (occurrence: CH)
  Receive Date: 20210301
  Receipt Date: 20220414
  Transmission Date: 20220721
  Serious: Yes (Hospitalization)
  Sender: FDA-Public Use
  Company Number: None

PATIENT
  Age: 61 Year
  Sex: Male
  Weight: 84 kg

DRUGS (8)
  1. METHOTREXATE [Interacting]
     Active Substance: METHOTREXATE
     Indication: B-cell lymphoma
     Dosage: CYCLICAL
     Route: 042
     Dates: start: 202007, end: 20201201
  2. METAMIZOLE [Interacting]
     Active Substance: METAMIZOLE
     Indication: Analgesic therapy
     Dosage: AS NECESSARY; UP TO 4 G PER DAY
     Route: 048
     Dates: start: 202007, end: 20210104
  3. METAMIZOLE [Interacting]
     Active Substance: METAMIZOLE
     Indication: Antipyresis
  4. ASPIRIN [Concomitant]
     Active Substance: ASPIRIN
     Indication: Coronary artery disease
     Route: 048
     Dates: start: 202006
  5. BISOPROLOL FUMARATE [Concomitant]
     Active Substance: BISOPROLOL FUMARATE
     Indication: Hypertension
     Route: 048
     Dates: start: 202006
  6. BISOPROLOL FUMARATE [Concomitant]
     Active Substance: BISOPROLOL FUMARATE
     Indication: Coronary artery disease
  7. TORSEMIDE [Concomitant]
     Active Substance: TORSEMIDE
     Indication: Hypertension
     Route: 048
  8. ROSUVASTATIN CALCIUM [Concomitant]
     Active Substance: ROSUVASTATIN CALCIUM
     Indication: Coronary artery disease
     Route: 048
     Dates: start: 202006

REACTIONS (7)
  - Pancytopenia [Recovering/Resolving]
  - Neutropenia [Recovering/Resolving]
  - Headache [Recovering/Resolving]
  - Decreased appetite [Recovering/Resolving]
  - Diarrhoea [Recovering/Resolving]
  - Pyrexia [Recovering/Resolving]
  - Drug interaction [Recovering/Resolving]

NARRATIVE: CASE EVENT DATE: 20200701
